FAERS Safety Report 6822341-0 (Version None)
Quarter: 2010Q3

REPORT INFORMATION
  Report Type: 
  Country: None (occurrence: None)
  Receive Date: 20100708
  Receipt Date: 20100624
  Transmission Date: 20110219
  Serious: Yes (Other)
  Sender: FDA-Public Use
  Company Number: PHHY2010CA41910

PATIENT
  Sex: Female

DRUGS (6)
  1. ACLASTA/ZOLEDRONATE T29581+A+ [Suspect]
     Indication: OSTEOPOROSIS
     Dosage: 5 MG/ 100 ML PER YEAR
     Dates: start: 20090716
  2. AVAPRO [Concomitant]
     Dosage: 150 MG, QD
     Dates: start: 20031118
  3. SYNTHROID [Concomitant]
     Dosage: UNK
     Dates: start: 19800101
  4. FENOFIBRATE [Concomitant]
     Dosage: UNK
     Dates: start: 19960101
  5. METFORMIN HCL [Concomitant]
     Dosage: UNK
     Dates: start: 19990226
  6. LANTUS [Concomitant]
     Dosage: UNK
     Dates: start: 20081010

REACTIONS (3)
  - ARTHRALGIA [None]
  - FINGER DEFORMITY [None]
  - JOINT SWELLING [None]
